FAERS Safety Report 11565355 (Version 1)
Quarter: 2015Q3

REPORT INFORMATION
  Report Type: Spontaneous
  Country: US (occurrence: US)
  Receive Date: 20150928
  Receipt Date: 20150928
  Transmission Date: 20151125
  Serious: No
  Sender: FDA-Public Use
  Company Number: US-OTSUKA-US-2015-11307

PATIENT
  Age: 20 Year
  Sex: Male
  Weight: 79.37 kg

DRUGS (2)
  1. ABILIFY MAINTENA [Suspect]
     Active Substance: ARIPIPRAZOLE
     Indication: MENTAL DISORDER
     Dosage: 400 MG, QM
     Route: 030
     Dates: start: 2014
  2. ARIPIPRAZOLE. [Suspect]
     Active Substance: ARIPIPRAZOLE
     Indication: MENTAL DISORDER
     Dosage: 15 MG, QD
     Route: 048
     Dates: start: 201404, end: 2014

REACTIONS (1)
  - Off label use [Unknown]
